FAERS Safety Report 7898369-9 (Version None)
Quarter: 2011Q4

REPORT INFORMATION
  Report Type: 
  Country: None (occurrence: None)
  Receive Date: 20111107
  Receipt Date: 20111102
  Transmission Date: 20120403
  Serious: Yes (Hospitalization, Congenital Anomaly, Other)
  Sender: FDA-Public Use
  Company Number: US-PFIZER INC-2011159758

PATIENT
  Sex: Male
  Weight: 3.22 kg

DRUGS (4)
  1. BUSPAR [Concomitant]
     Dosage: ONE AND HALF TABLETS TWICE DAILY AND INCREASED TO 2 TABLETS TWICE DAILY.
     Route: 064
  2. ZOLOFT [Suspect]
     Indication: ANXIETY
  3. KLONOPIN [Concomitant]
     Dosage: AT NIGHT
     Route: 064
  4. ZOLOFT [Suspect]
     Indication: DEPRESSION
     Dosage: 100MG, UNK
     Route: 064
     Dates: start: 20070101

REACTIONS (3)
  - MATERNAL EXPOSURE TIMING UNSPECIFIED [None]
  - CRANIOSYNOSTOSIS [None]
  - FAILURE TO THRIVE [None]
